FAERS Safety Report 20411244 (Version 1)
Quarter: 2022Q1

REPORT INFORMATION
  Report Type: Spontaneous
  Country: US (occurrence: None)
  Receive Date: 20220201
  Receipt Date: 20220201
  Transmission Date: 20220423
  Serious: Yes (Life-Threatening, Hospitalization)
  Sender: FDA-Public Use
  Company Number: None

PATIENT
  Age: 75 Year
  Sex: Male
  Weight: 109 kg

DRUGS (1)
  1. VANCOMYCIN HYDROCHLORIDE [Suspect]
     Active Substance: VANCOMYCIN HYDROCHLORIDE
     Indication: Skin bacterial infection
     Dosage: 2000 MG ONCE IV?
     Route: 042
     Dates: start: 20211110, end: 20211110

REACTIONS (9)
  - Angioedema [None]
  - Cold sweat [None]
  - Cyanosis [None]
  - Anaphylactic reaction [None]
  - Respiratory depression [None]
  - Urticaria [None]
  - Pruritus [None]
  - Seizure [None]
  - Cardiac arrest [None]

NARRATIVE: CASE EVENT DATE: 20211110
